FAERS Safety Report 5402971-3 (Version None)
Quarter: 2007Q3

REPORT INFORMATION
  Report Type: 
  Country: None (occurrence: None)
  Receive Date: 20070801
  Receipt Date: 20070719
  Transmission Date: 20080115
  Serious: Yes (Other)
  Sender: FDA-Public Use
  Company Number: US-GENENTECH-244806

PATIENT
  Sex: Female
  Weight: 107 kg

DRUGS (3)
  1. BLINDED OMALIZUMAB [Suspect]
     Indication: ASTHMA
     Dosage: UNK, Q2W
     Route: 058
     Dates: start: 20070328, end: 20070703
  2. BLINDED PLACEBO [Suspect]
     Indication: ASTHMA
     Dosage: UNK, Q2W
     Route: 058
     Dates: start: 20070328, end: 20070703
  3. ALLERGENS [Concomitant]
     Indication: ASTHMA
     Dates: end: 20070703

REACTIONS (1)
  - ANAPHYLACTIC REACTION [None]
